FAERS Safety Report 17330583 (Version 1)
Quarter: 2020Q1

REPORT INFORMATION
  Report Type: Spontaneous
  Country: US (occurrence: US)
  Receive Date: 20200128
  Receipt Date: 20200128
  Transmission Date: 20200409
  Serious: No
  Sender: FDA-Public Use
  Company Number: US-ASTRAZENECA-2020SE09906

PATIENT
  Sex: Female
  Weight: 6.4 kg

DRUGS (4)
  1. SYNAGIS [Suspect]
     Active Substance: PALIVIZUMAB
     Indication: LOW BIRTH WEIGHT BABY
     Route: 030
     Dates: start: 201912
  2. POLY-VI-SOL WITH IRON [Concomitant]
     Active Substance: IRON\VITAMINS
  3. SYNAGIS [Suspect]
     Active Substance: PALIVIZUMAB
     Indication: LOW BIRTH WEIGHT BABY
     Dosage: 50 MG/0.5ML VL 15 MG/KG MONTHLY
     Route: 030
     Dates: start: 20191127
  4. OMEPRAZOLE. [Suspect]
     Active Substance: OMEPRAZOLE
     Dosage: 10.0MG UNKNOWN
     Route: 048

REACTIONS (4)
  - Restlessness [Unknown]
  - Pain [Unknown]
  - Somnolence [Unknown]
  - Inappropriate schedule of product administration [Unknown]
